FAERS Safety Report 24423099 (Version 1)
Quarter: 2024Q4

REPORT INFORMATION
  Report Type: Spontaneous
  Country: US (occurrence: US)
  Receive Date: 20241010
  Receipt Date: 20241010
  Transmission Date: 20250115
  Serious: Yes (Other)
  Sender: RANBAXY
  Company Number: US-SUN PHARMACEUTICAL INDUSTRIES LTD-2024R1-472180

PATIENT
  Age: 44 Year
  Sex: Male

DRUGS (6)
  1. PREDNISONE [Suspect]
     Active Substance: PREDNISONE
     Indication: Benign oesophageal neoplasm
     Dosage: UNK
     Route: 065
  2. PREDNISONE [Suspect]
     Active Substance: PREDNISONE
     Indication: Endocarditis
  3. PREDNISONE [Suspect]
     Active Substance: PREDNISONE
     Indication: Aortic valve incompetence
  4. AZATHIOPRINE [Suspect]
     Active Substance: AZATHIOPRINE
     Indication: Benign oesophageal neoplasm
  5. AZATHIOPRINE [Suspect]
     Active Substance: AZATHIOPRINE
     Indication: Endocarditis
     Dosage: UNK
     Route: 065
  6. AZATHIOPRINE [Suspect]
     Active Substance: AZATHIOPRINE
     Indication: Aortic valve incompetence

REACTIONS (4)
  - Endocarditis [Unknown]
  - Disease progression [Unknown]
  - Interstitial lung disease [Unknown]
  - Hypereosinophilic syndrome [Unknown]
